FAERS Safety Report 9097508 (Version 1)
Quarter: 2013Q1

REPORT INFORMATION
  Report Type: Spontaneous
  Country: BR (occurrence: BR)
  Receive Date: 20130212
  Receipt Date: 20130212
  Transmission Date: 20140127
  Serious: Yes (Hospitalization)
  Sender: FDA-Public Use
  Company Number: BR-ASTRAZENECA-2013SE08680

PATIENT
  Age: 788 Month
  Sex: Male
  Weight: 86 kg

DRUGS (11)
  1. CRESTOR [Suspect]
     Indication: BLOOD CHOLESTEROL ABNORMAL
     Route: 048
     Dates: start: 2010
  2. GLIFAGE [Concomitant]
     Indication: DIABETES MELLITUS
  3. DIAMICRON [Concomitant]
     Indication: DIABETES MELLITUS
  4. UNSPECIFIED MEDICATION [Concomitant]
     Indication: GASTRITIS PROPHYLAXIS
  5. ZETIA [Concomitant]
  6. MONOCORDIL [Concomitant]
  7. CARVEDILOL [Concomitant]
  8. RENITEC [Concomitant]
  9. SYNTHROID [Concomitant]
  10. ESPIRONOLACTONE [Concomitant]
  11. ASPIRIN [Concomitant]
     Route: 048

REACTIONS (1)
  - Myocardial infarction [Recovered/Resolved]
